FAERS Safety Report 15149298 (Version 1)
Quarter: 2018Q3

REPORT INFORMATION
  Report Type: Spontaneous
  Country: US (occurrence: US)
  Receive Date: 20180716
  Receipt Date: 20180716
  Transmission Date: 20181010
  Serious: No
  Sender: FDA-Public Use
  Company Number: US-FOUNDATIONCONSUMERHC-2018-US-010727

PATIENT
  Age: 28 Year
  Sex: Female
  Weight: 104.33 kg

DRUGS (4)
  1. HYDROCODONE?ACETAMINOPHEN [Concomitant]
     Active Substance: ACETAMINOPHEN\HYDROCODONE
  2. PLAN B ONE?STEP [Suspect]
     Active Substance: LEVONORGESTREL
     Indication: POST COITAL CONTRACEPTION
     Dosage: 1.5MG
     Route: 048
     Dates: start: 20180619, end: 20180619
  3. PENICILLIN [Concomitant]
     Active Substance: PENICILLIN
  4. INHALER UNSPECIFIED [Concomitant]
     Route: 055

REACTIONS (3)
  - Oligomenorrhoea [Unknown]
  - Menstrual disorder [Unknown]
  - Vaginal haemorrhage [Not Recovered/Not Resolved]

NARRATIVE: CASE EVENT DATE: 201806
